FAERS Safety Report 8938919 (Version 1)
Quarter: 2012Q4

REPORT INFORMATION
  Report Type: 
  Country: US (occurrence: US)
  Receive Date: 20121203
  Receipt Date: 20121203
  Transmission Date: 20130627
  Serious: Yes (Other)
  Sender: FDA-Public Use
  Company Number: US-SANOFI-AVENTIS-2012SA086656

PATIENT
  Sex: Female

DRUGS (2)
  1. LANTUS SOLOSTAR [Suspect]
     Indication: TYPE II DIABETES MELLITUS
     Dosage: Dose:80 unit(s)
     Route: 058
  2. SOLOSTAR [Suspect]
     Indication: TYPE II DIABETES MELLITUS

REACTIONS (3)
  - Cataract [Unknown]
  - Retinal detachment [Unknown]
  - Blindness unilateral [Unknown]
